FAERS Safety Report 10159314 (Version 1)
Quarter: 2014Q2

REPORT INFORMATION
  Report Type: Report from Study
  Country: CA (occurrence: CA)
  Receive Date: 20140508
  Receipt Date: 20140508
  Transmission Date: 20141212
  Serious: Yes (Other)
  Sender: FDA-Public Use
  Company Number: CA-JNJFOC-20140501125

PATIENT
  Age: 42 Year
  Sex: Male
  Weight: 123 kg

DRUGS (5)
  1. REMICADE [Suspect]
     Indication: COLITIS ULCERATIVE
     Route: 042
     Dates: start: 20140501
  2. REMICADE [Suspect]
     Indication: COLITIS ULCERATIVE
     Route: 042
     Dates: start: 201403
  3. MEZAVANT [Concomitant]
     Route: 065
  4. IMURAN [Concomitant]
     Route: 065
  5. NEXIUM [Concomitant]
     Route: 065

REACTIONS (3)
  - Presyncope [Recovered/Resolved]
  - Infusion related reaction [Recovered/Resolved]
  - Syncope [Unknown]
